FAERS Safety Report 7004800-3 (Version None)
Quarter: 2010Q3

REPORT INFORMATION
  Report Type: 
  Country: None (occurrence: None)
  Receive Date: 20100921
  Receipt Date: 20100908
  Transmission Date: 20110219
  Serious: Yes (Disabling)
  Sender: FDA-Public Use
  Company Number: FR-ASTRAZENECA-2010SE09643

PATIENT
  Age: 494 Month
  Sex: Female
  Weight: 52 kg

DRUGS (3)
  1. NOLVADEX [Suspect]
     Indication: BREAST CANCER
     Route: 048
     Dates: start: 20100401
  2. TAMOXIFENE GENERIQUE [Suspect]
     Indication: BREAST CANCER
     Dates: start: 20090601, end: 20091015
  3. TAMOXIFENE GENERIQUE [Suspect]
     Dates: start: 20100201, end: 20100301

REACTIONS (3)
  - MYALGIA [None]
  - MYALGIA INTERCOSTAL [None]
  - UTERINE CYST [None]
